FAERS Safety Report 9248472 (Version 1)
Quarter: 2013Q2

REPORT INFORMATION
  Report Type: Spontaneous
  Country: US (occurrence: US)
  Receive Date: 20130423
  Receipt Date: 20130423
  Transmission Date: 20140414
  Serious: Yes (Life-Threatening, Hospitalization)
  Sender: FDA-Public Use
  Company Number: US-BANPHARM-20131174

PATIENT
  Age: 72 Year
  Sex: Female
  Weight: 62.6 kg

DRUGS (1)
  1. ALEVE LIQUID GELS 220 MG [Suspect]
     Indication: PAIN
     Dosage: 1 DF, PRN,
     Route: 048
     Dates: start: 201212, end: 20130101

REACTIONS (7)
  - Foaming at mouth [Recovered/Resolved]
  - Blood pressure decreased [Recovered/Resolved]
  - Paraesthesia [Recovered/Resolved]
  - Local swelling [Recovered/Resolved]
  - Rash generalised [Recovered/Resolved]
  - Lip swelling [Recovered/Resolved]
  - Shock [Recovered/Resolved]
